FAERS Safety Report 20702711 (Version 1)
Quarter: 2022Q2

REPORT INFORMATION
  Report Type: Spontaneous
  Country: FI (occurrence: FI)
  Receive Date: 20220412
  Receipt Date: 20220412
  Transmission Date: 20220720
  Serious: Yes (Other)
  Sender: FDA-Public Use
  Company Number: FI-GRUNENTHAL-2022-102981

PATIENT
  Age: 48 Year
  Sex: Female

DRUGS (9)
  1. QUTENZA [Suspect]
     Active Substance: CAPSAICIN
     Indication: Complex regional pain syndrome
     Dosage: UNK
     Route: 065
     Dates: start: 202108
  2. QUTENZA [Suspect]
     Active Substance: CAPSAICIN
     Indication: Nerve injury
  3. PANADOL [Concomitant]
     Active Substance: ACETAMINOPHEN
     Dosage: 1 GRAM, 2/DAY
     Route: 065
  4. DULOXETINE [Concomitant]
     Active Substance: DULOXETINE
     Dosage: 120 MILLIGRAM, 1/DAY
     Route: 065
  5. TARGINIQ ER [Concomitant]
     Active Substance: NALOXONE HYDROCHLORIDE\OXYCODONE HYDROCHLORIDE
     Dosage: 2 DOSAGE FORM, 2/DAY
     Route: 065
  6. GABAPENTIN [Concomitant]
     Active Substance: GABAPENTIN
     Dosage: 1800 MILLIGRAM, 2/DAY
     Route: 065
  7. CHONDROITIN SULFATE SODIUM NOS [Concomitant]
     Active Substance: CHONDROITIN SULFATE SODIUM NOS
     Dosage: 800 MILLIGRAM, 1/DAY
     Route: 065
  8. BACLOFEN [Concomitant]
     Active Substance: BACLOFEN
     Dosage: 20 MILLIGRAM, 1/DAY
     Route: 065
  9. CLONAZEPAM [Concomitant]
     Active Substance: CLONAZEPAM
     Dosage: 1 MILLIGRAM, 1/DAY
     Route: 065

REACTIONS (7)
  - Hypersensitivity [Recovered/Resolved]
  - Paraesthesia [Recovered/Resolved]
  - Blister [Recovered/Resolved]
  - Palpitations [Recovered/Resolved]
  - Muscle spasms [Recovered/Resolved]
  - Mobility decreased [Recovered/Resolved]
  - Hyperhidrosis [Recovered/Resolved]

NARRATIVE: CASE EVENT DATE: 20220314
